FAERS Safety Report 5916686-6 (Version None)
Quarter: 2008Q4

REPORT INFORMATION
  Report Type: 
  Country: None (occurrence: None)
  Receive Date: 20081013
  Receipt Date: 20081006
  Transmission Date: 20090506
  Serious: Yes (Other)
  Sender: FDA-Public Use
  Company Number: ES-BAXTER-2008BH010633

PATIENT
  Age: 48 Year
  Sex: Female

DRUGS (4)
  1. HOLOXAN BAXTER [Suspect]
     Indication: SARCOMA
     Route: 042
     Dates: start: 20080208, end: 20080309
  2. DOXORUBICIN HCL [Suspect]
     Indication: SARCOMA
     Dosage: DOSE UNIT:UNKNOWN
     Route: 042
     Dates: start: 20080208, end: 20080309
  3. PREGABALIN [Concomitant]
     Route: 048
  4. TRYPTIZOL [Concomitant]
     Indication: NEURALGIA
     Route: 048

REACTIONS (1)
  - INTERSTITIAL LUNG DISEASE [None]
